FAERS Safety Report 6719166-3 (Version None)
Quarter: 2010Q2

REPORT INFORMATION
  Report Type: 
  Country: None (occurrence: None)
  Receive Date: 20100511
  Receipt Date: 20100504
  Transmission Date: 20101027
  Serious: Yes (Other)
  Sender: FDA-Public Use
  Company Number: US-BAYER-201015082BCC

PATIENT
  Age: 82 Year
  Sex: Female
  Weight: 68 kg

DRUGS (4)
  1. ALEVE (CAPLET) [Suspect]
     Indication: SCIATICA
     Dosage: TOTAL DAILY DOSE: 220 MG  UNIT DOSE: 220 MG
     Route: 048
     Dates: start: 20100401
  2. HYDROCHLOROTHIAZIDE [Concomitant]
     Route: 065
  3. ATENOLOL [Concomitant]
     Route: 065
  4. FELODIPINE [Concomitant]
     Route: 065

REACTIONS (3)
  - ARTHRALGIA [None]
  - BLOOD PRESSURE INCREASED [None]
  - SCIATICA [None]
